FAERS Safety Report 7955123-7 (Version None)
Quarter: 2011Q4

REPORT INFORMATION
  Report Type: 
  Country: None (occurrence: None)
  Receive Date: 20111202
  Receipt Date: 20111123
  Transmission Date: 20120403
  Serious: Yes (Hospitalization)
  Sender: FDA-Public Use
  Company Number: NL-TEVA-310649ISR

PATIENT
  Sex: Male

DRUGS (12)
  1. THIAMINE TABLET 100MG [Concomitant]
     Dates: start: 20111001
  2. LOSARTAN TABLET 50MG [Suspect]
     Indication: ACCIDENTAL EXPOSURE
     Dates: start: 20111001
  3. OMEPRAZOL CAPSULE MGA 40MG [Concomitant]
     Dosage: 40 MILLIGRAM;
  4. DICLOFENAC-NATRIUM TABLET MSR 25MG [Concomitant]
     Dates: start: 20111001
  5. THYRAX DUOTAB TABLET 0.025MG [Concomitant]
     Dosage: 50 MICROGRAM;
  6. LOPERAMIDE CAPSULE 2MG [Concomitant]
     Dosage: 4 MILLIGRAM;
  7. ALENDRONINEZUUR TABLET 70MG [Concomitant]
  8. PYRIDOXINE TABLET 20MG [Concomitant]
     Dates: start: 20111001
  9. ALLOPURINOL [Concomitant]
     Dosage: 300 MILLIGRAM;
  10. CALCICHEW 500MG [Concomitant]
     Dosage: 2 DOSAGE FORMS;
  11. ATENOLOL AND CHLORTHALIDONE [Suspect]
     Indication: ACCIDENTAL EXPOSURE
     Dates: start: 20111001
  12. AMLODIPINE [Suspect]
     Indication: ACCIDENTAL EXPOSURE
     Dates: start: 20111001

REACTIONS (3)
  - ACCIDENTAL EXPOSURE [None]
  - VENTRICULAR FIBRILLATION [None]
  - CONVULSION [None]
